FAERS Safety Report 7340859-1 (Version None)
Quarter: 2011Q1

REPORT INFORMATION
  Report Type: 
  Country: None (occurrence: None)
  Receive Date: 20110309
  Receipt Date: 20110228
  Transmission Date: 20110831
  Serious: Yes (Other)
  Sender: FDA-Public Use
  Company Number: US-TEVA-268971USA

PATIENT
  Sex: Female

DRUGS (2)
  1. CLARAVIS [Suspect]
     Indication: ACNE
     Route: 048
     Dates: start: 20100901, end: 20101201
  2. PREDNISONE [Concomitant]
     Dates: start: 20101101, end: 20101201

REACTIONS (2)
  - JUVENILE ARTHRITIS [None]
  - ARTHRALGIA [None]
